FAERS Safety Report 5696489-0 (Version None)
Quarter: 2008Q2

REPORT INFORMATION
  Report Type: 
  Country: None (occurrence: None)
  Receive Date: 20080408
  Receipt Date: 20080404
  Transmission Date: 20081010
  Serious: Yes (Disabling)
  Sender: FDA-Public Use
  Company Number: US-BOEHRINGER INGELHEIM GMBH, GERMANY-2008-BP-02545RO

PATIENT
  Sex: Female
  Weight: 57 kg

DRUGS (18)
  1. LIDOCAINE VISCOUS, 2% (ORAL TOPICAL SOLUTION USP) [Suspect]
     Indication: OESOPHAGEAL MANOMETRY
     Route: 048
     Dates: start: 20080204, end: 20080204
  2. SYNTHROID [Concomitant]
     Indication: HYPOTHYROIDISM
  3. COUMADIN [Concomitant]
     Indication: TRANSIENT ISCHAEMIC ATTACK
     Dates: start: 20050101
  4. COUMADIN [Concomitant]
     Indication: COAGULOPATHY
  5. COUMADIN [Concomitant]
     Indication: CEREBROVASCULAR ACCIDENT
  6. SINEQUAN [Concomitant]
     Indication: FIBROMYALGIA
  7. CELEBREX [Concomitant]
     Indication: ARTHRITIS
  8. NEURONTIN [Concomitant]
     Indication: INTERVERTEBRAL DISC DEGENERATION
  9. NEURONTIN [Concomitant]
     Indication: PAIN
  10. TOPROL-XL [Concomitant]
     Indication: ARRHYTHMIA
  11. TOPROL-XL [Concomitant]
     Indication: PALPITATIONS
  12. ULTRAM [Concomitant]
     Indication: PAIN
  13. ZOCOR [Concomitant]
     Indication: BLOOD CHOLESTEROL INCREASED
  14. AMBIEN [Concomitant]
     Indication: SLEEP DISORDER
  15. ADVAIR HFA [Concomitant]
     Indication: SEASONAL ALLERGY
     Dates: start: 20071201
  16. ADVAIR HFA [Concomitant]
     Indication: ASTHMA
  17. SIMVASTATIN [Concomitant]
     Indication: BLOOD CHOLESTEROL INCREASED
  18. ANTICARDIAC PILL [Concomitant]

REACTIONS (11)
  - CHILLS [None]
  - COUGH [None]
  - ERYTHEMA [None]
  - HEADACHE [None]
  - HYPERSENSITIVITY [None]
  - NAUSEA [None]
  - OEDEMA [None]
  - PALPITATIONS [None]
  - SINUS TACHYCARDIA [None]
  - SKIN BURNING SENSATION [None]
  - THINKING ABNORMAL [None]
